FAERS Safety Report 6271783-3 (Version None)
Quarter: 2009Q3

REPORT INFORMATION
  Report Type: 
  Country: None (occurrence: None)
  Receive Date: 20090717
  Receipt Date: 20090714
  Transmission Date: 20100115
  Serious: Yes (Life-Threatening)
  Sender: FDA-Public Use
  Company Number: BR-JNJFOC-20090705150

PATIENT
  Age: 72 Year
  Sex: Male
  Weight: 35 kg

DRUGS (3)
  1. IMOSEC [Suspect]
     Route: 065
  2. IMOSEC [Suspect]
     Indication: DIARRHOEA
     Dosage: SINCE FOUR TO FIVE MONTHS, TAKES 6 TABLETS EVERYDAY AND SOMETIMES 8 TABLETS.
     Route: 065
  3. DIPYRONE [Concomitant]
     Indication: RADICULAR PAIN
     Route: 065

REACTIONS (9)
  - DECREASED APPETITE [None]
  - DEHYDRATION [None]
  - DRUG INEFFECTIVE [None]
  - HYPOTENSION [None]
  - OVERDOSE [None]
  - RESPIRATORY DEPRESSION [None]
  - SELF-MEDICATION [None]
  - SOMNOLENCE [None]
  - VOMITING [None]
